FAERS Safety Report 5752445-5 (Version None)
Quarter: 2008Q2

REPORT INFORMATION
  Report Type: 
  Country: None (occurrence: None)
  Receive Date: 20080529
  Receipt Date: 20080528
  Transmission Date: 20081010
  Serious: Yes (Other)
  Sender: FDA-Public Use
  Company Number: B0522756A

PATIENT
  Age: 73 Year
  Sex: Female

DRUGS (3)
  1. CARVEDILOL [Suspect]
     Indication: DRUG USE FOR UNKNOWN INDICATION
     Dosage: 25MG TWICE PER DAY
     Route: 065
     Dates: start: 20071101
  2. CABASER [Concomitant]
     Dates: end: 20080401
  3. MADOPAR [Concomitant]
     Route: 065

REACTIONS (1)
  - HALLUCINATION [None]
